FAERS Safety Report 10909737 (Version 2)
Quarter: 2015Q3

REPORT INFORMATION
  Report Type: Spontaneous
  Country: US (occurrence: US)
  Receive Date: 20150312
  Receipt Date: 20150827
  Transmission Date: 20151125
  Serious: Yes (Hospitalization, Other)
  Sender: FDA-Public Use
  Company Number: US-JNJFOC-20150308703

PATIENT
  Age: 74 Year
  Sex: Male

DRUGS (8)
  1. IMBRUVICA [Suspect]
     Active Substance: IBRUTINIB
     Indication: CHRONIC LYMPHOCYTIC LEUKAEMIA
     Route: 048
     Dates: start: 20150105
  2. ZOVIRAX [Concomitant]
     Active Substance: ACYCLOVIR
     Route: 048
  3. IMBRUVICA [Suspect]
     Active Substance: IBRUTINIB
     Indication: CHRONIC LYMPHOCYTIC LEUKAEMIA
     Route: 048
     Dates: start: 20140425, end: 20150101
  4. TYLENOL WITH CODEINE NO.3 [Concomitant]
     Active Substance: ACETAMINOPHEN\CODEINE PHOSPHATE
     Dosage: ONE TAB Q HRS PRN
  5. VFEND [Concomitant]
     Active Substance: VORICONAZOLE
     Indication: OSTEOMYELITIS
     Route: 048
  6. MOTRIN [Concomitant]
     Active Substance: IBUPROFEN
  7. REMERON [Concomitant]
     Active Substance: MIRTAZAPINE
     Dosage: Q PM
     Route: 048
  8. METOPROLOL [Concomitant]
     Active Substance: METOPROLOL

REACTIONS (12)
  - Incorrect dose administered [Not Recovered/Not Resolved]
  - Electrolyte imbalance [Unknown]
  - Gait disturbance [Not Recovered/Not Resolved]
  - Atrial fibrillation [Recovered/Resolved]
  - Pneumonia aspiration [Recovering/Resolving]
  - Renal failure [Unknown]
  - Tachycardia [Recovered/Resolved]
  - Asthenia [Not Recovered/Not Resolved]
  - Euthyroid sick syndrome [Unknown]
  - Cardiac failure congestive [Not Recovered/Not Resolved]
  - Influenza [Unknown]
  - Weight increased [Not Recovered/Not Resolved]

NARRATIVE: CASE EVENT DATE: 20140425
